FAERS Safety Report 8540205-1 (Version None)
Quarter: 2012Q3

REPORT INFORMATION
  Report Type: 
  Country: None (occurrence: None)
  Receive Date: 20120726
  Receipt Date: 20120718
  Transmission Date: 20120928
  Serious: Yes (Life-Threatening, Hospitalization)
  Sender: FDA-Public Use
  Company Number: DE-ROCHE-1091066

PATIENT
  Sex: Male
  Weight: 79.8 kg

DRUGS (10)
  1. MARCUMAR [Concomitant]
     Dates: start: 20111111
  2. LEVOTHYROXIN NATRIUM [Concomitant]
     Dates: start: 20070201
  3. METAMIZOL [Concomitant]
  4. TORSEMIDE [Concomitant]
     Dates: start: 20110606
  5. DREISAVIT [Concomitant]
     Dosage: 1 TABLET
     Dates: start: 20111102
  6. DIGITOXIN TAB [Concomitant]
     Dates: start: 20111028
  7. ALFACALCIDOL [Concomitant]
     Dates: start: 20110611
  8. MIRCERA [Suspect]
     Indication: ANAEMIA
     Dosage: LAST DOSE PRIOR TO SAE : 07/MAY/2012
     Route: 042
     Dates: start: 20111219
  9. CARVEDILOL [Concomitant]
     Dates: start: 20070521
  10. VALSARTAN [Concomitant]
     Dates: start: 20080605

REACTIONS (2)
  - CEREBRAL INFARCTION [None]
  - SPEECH DISORDER [None]
